FAERS Safety Report 19047370 (Version 4)
Quarter: 2021Q3

REPORT INFORMATION
  Report Type: Report from Study
  Country: US (occurrence: US)
  Receive Date: 20210323
  Receipt Date: 20210706
  Transmission Date: 20211014
  Serious: No
  Sender: FDA-Public Use
  Company Number: US-TAKEDA-2021TUS018126

PATIENT
  Sex: Male

DRUGS (2)
  1. BRIGATINIB [Suspect]
     Active Substance: BRIGATINIB
     Indication: LUNG NEOPLASM MALIGNANT
     Dosage: 90 MILLIGRAM, QOD
     Route: 065
     Dates: start: 20210305
  2. BRIGATINIB [Suspect]
     Active Substance: BRIGATINIB
     Dosage: 90 MILLIGRAM, QD
     Route: 048

REACTIONS (6)
  - Localised infection [Unknown]
  - Weight decreased [Unknown]
  - Renal disorder [Unknown]
  - Off label use [Unknown]
  - Blood pressure increased [Unknown]
  - White blood cell count abnormal [Unknown]
